FAERS Safety Report 5446719-5 (Version None)
Quarter: 2007Q3

REPORT INFORMATION
  Report Type: 
  Country: None (occurrence: None)
  Receive Date: 20070907
  Receipt Date: 20070824
  Transmission Date: 20080115
  Serious: No
  Sender: FDA-Public Use
  Company Number: US-BOEHRINGER INGELHEIM PHARMACEUTICALS, INC.-2007-BP-19842BP

PATIENT
  Sex: Male

DRUGS (1)
  1. FLOMAX [Suspect]
     Indication: BENIGN PROSTATIC HYPERPLASIA
     Route: 048
     Dates: start: 20060101

REACTIONS (6)
  - DIZZINESS EXERTIONAL [None]
  - ERECTILE DYSFUNCTION [None]
  - NASAL CONGESTION [None]
  - RETROGRADE EJACULATION [None]
  - SOMNOLENCE [None]
  - VERTIGO [None]
